FAERS Safety Report 4473976-4 (Version None)
Quarter: 2004Q4

REPORT INFORMATION
  Report Type: 
  Country: None (occurrence: None)
  Receive Date: 20041008
  Receipt Date: 20040921
  Transmission Date: 20050328
  Serious: Yes (Other)
  Sender: FDA-Public Use
  Company Number: USA040978899

PATIENT
  Age: 71 Year
  Sex: Female
  Weight: 105 kg

DRUGS (4)
  1. HUMULIN 70/30 [Suspect]
     Dosage: 55 U/2 DAY
     Dates: start: 19970101
  2. CENTRUM PERFORMANCE MULTIVITAMIN [Concomitant]
  3. VITAMIN E [Concomitant]
  4. NIACIN [Concomitant]

REACTIONS (7)
  - BLOOD GLUCOSE INCREASED [None]
  - BODY TEMPERATURE INCREASED [None]
  - BREAST CANCER [None]
  - HOT FLUSH [None]
  - INFECTION [None]
  - PHARMACEUTICAL PRODUCT COMPLAINT [None]
  - WEIGHT LOSS POOR [None]
